FAERS Safety Report 18692700 (Version 1)
Quarter: 2021Q1

REPORT INFORMATION
  Report Type: Spontaneous
  Country: BE (occurrence: BE)
  Receive Date: 20210104
  Receipt Date: 20210104
  Transmission Date: 20210419
  Serious: Yes (Death, Hospitalization, Other)
  Sender: FDA-Public Use
  Company Number: BE-ABBVIE-20K-013-3685228-00

PATIENT
  Age: 87 Year
  Sex: Female
  Weight: 63 kg

DRUGS (1)
  1. IMBRUVICA [Suspect]
     Active Substance: IBRUTINIB
     Indication: DIFFUSE LARGE B-CELL LYMPHOMA REFRACTORY
     Route: 048
     Dates: start: 20190222, end: 20201118

REACTIONS (4)
  - COVID-19 pneumonia [Fatal]
  - Off label use [Unknown]
  - Product use in unapproved indication [Unknown]
  - Respiratory failure [Fatal]

NARRATIVE: CASE EVENT DATE: 20201107
